FAERS Safety Report 11647135 (Version 1)
Quarter: 2015Q4

REPORT INFORMATION
  Report Type: Spontaneous
  Country: US (occurrence: US)
  Receive Date: 20151021
  Receipt Date: 20151021
  Transmission Date: 20160304
  Serious: No
  Sender: FDA-Public Use
  Company Number: US-TEVA-578591USA

PATIENT
  Sex: Female

DRUGS (1)
  1. PHENTERMINE. [Suspect]
     Active Substance: PHENTERMINE
     Indication: WEIGHT LOSS DIET
     Route: 065

REACTIONS (6)
  - Tongue dry [Unknown]
  - Decreased appetite [Unknown]
  - Dry mouth [Unknown]
  - Product substitution issue [Unknown]
  - Psychomotor hyperactivity [Unknown]
  - Drug effect delayed [Unknown]
